FAERS Safety Report 11731881 (Version 1)
Quarter: 2015Q4

REPORT INFORMATION
  Report Type: Spontaneous
  Country: IT (occurrence: IT)
  Receive Date: 20151113
  Receipt Date: 20151113
  Transmission Date: 20160304
  Serious: Yes (Other)
  Sender: FDA-Public Use
  Company Number: IT-TEVA-607222ACC

PATIENT
  Age: 55 Year
  Sex: Male

DRUGS (2)
  1. RIBAVIRIN. [Suspect]
     Active Substance: RIBAVIRIN
     Indication: HEPATITIS C
     Dosage: DAILY;2 CAPSULES X 2
     Route: 048
     Dates: start: 20150414, end: 20150820
  2. SOVALDI [Concomitant]
     Active Substance: SOFOSBUVIR
     Indication: HEPATITIS C
     Dosage: 400 MG
     Route: 048
     Dates: start: 20150414, end: 20150820

REACTIONS (1)
  - Pneumonitis [Recovered/Resolved]

NARRATIVE: CASE EVENT DATE: 20150715
